FAERS Safety Report 18879540 (Version 1)
Quarter: 2021Q1

REPORT INFORMATION
  Report Type: Spontaneous
  Country: US (occurrence: US)
  Receive Date: 20210211
  Receipt Date: 20210211
  Transmission Date: 20210420
  Serious: Yes (Death)
  Sender: FDA-Public Use
  Company Number: None

PATIENT
  Age: 55 Year
  Sex: Male

DRUGS (7)
  1. LOKELMA [Suspect]
     Active Substance: SODIUM ZIRCONIUM CYCLOSILICATE
     Indication: HYPERKALAEMIA
     Dosage: ?          OTHER FREQUENCY:NONDIALYSIS DAYS;?
     Route: 048
  2. HYDRALAZINE 100MG TABLETS [Concomitant]
  3. CALCIUM ACETATE 667MG CAPSULES [Concomitant]
  4. CLONIDINE 0.3MG/24H WEEKLY PATCH [Concomitant]
  5. LABETALOL 200MG TABLETS [Concomitant]
     Active Substance: LABETALOL HYDROCHLORIDE
  6. VENTOLIN HFA INHALER [Concomitant]
  7. AMLODIPINE [Concomitant]
     Active Substance: AMLODIPINE BESYLATE

REACTIONS (1)
  - Death [None]

NARRATIVE: CASE EVENT DATE: 20210211
